FAERS Safety Report 5674973-3 (Version None)
Quarter: 2008Q1

REPORT INFORMATION
  Report Type: 
  Country: None (occurrence: None)
  Receive Date: 20080320
  Receipt Date: 20080314
  Transmission Date: 20080703
  Serious: Yes (Hospitalization)
  Sender: FDA-Public Use
  Company Number: US-BAXTER-2008BH002401

PATIENT
  Age: 88 Year
  Sex: Male

DRUGS (1)
  1. HEPARIN SODIUM [Suspect]
     Indication: PROPHYLAXIS
     Route: 033
     Dates: start: 20061206, end: 20080307

REACTIONS (5)
  - DYSPHAGIA [None]
  - HYPOTENSION [None]
  - NAUSEA [None]
  - RESTLESSNESS [None]
  - RETCHING [None]
